FAERS Safety Report 6528798-7 (Version None)
Quarter: 2010Q1

REPORT INFORMATION
  Report Type: 
  Country: None (occurrence: None)
  Receive Date: 20100106
  Receipt Date: 20091207
  Transmission Date: 20100710
  Serious: No
  Sender: FDA-Public Use
  Company Number: US-BAYER-200917677BCC

PATIENT
  Age: 80 Year
  Sex: Female
  Weight: 77 kg

DRUGS (7)
  1. ALEVE [Suspect]
     Indication: BACK PAIN
     Route: 048
  2. ALEVE [Suspect]
     Indication: BACK PAIN
     Dosage: TOTAL DAILY DOSE: 660 MG  UNIT DOSE: 220 MG
     Route: 048
     Dates: start: 20091206
  3. GLUCOSAMINE CHONDROITIN [Concomitant]
     Route: 065
  4. HUPAZINE H [Concomitant]
     Route: 065
  5. PHOSPHATIDYL SERINE [Concomitant]
     Route: 065
  6. VINPOCETINE [Concomitant]
     Route: 065
  7. MULTIPLE VITAMINS AND MULTIPLE MINERALS [Concomitant]
     Route: 065

REACTIONS (1)
  - BACK PAIN [None]
